FAERS Safety Report 12401018 (Version 2)
Quarter: 2016Q2

REPORT INFORMATION
  Report Type: Spontaneous
  Country: US (occurrence: US)
  Receive Date: 20160525
  Receipt Date: 20160525
  Transmission Date: 20160815
  Serious: No
  Sender: FDA-Public Use
  Company Number: US-SA-2015SA139839

PATIENT
  Sex: Female

DRUGS (1)
  1. LANTUS [Suspect]
     Active Substance: INSULIN GLARGINE
     Indication: DIABETES MELLITUS
     Route: 065

REACTIONS (6)
  - Swelling face [Unknown]
  - Rash [Unknown]
  - Pharyngeal oedema [Unknown]
  - Pruritus [Unknown]
  - Heart rate increased [Unknown]
  - Oedema peripheral [Unknown]
